FAERS Safety Report 10013185 (Version 2)
Quarter: 2014Q1

REPORT INFORMATION
  Report Type: Spontaneous
  Country: CA (occurrence: CA)
  Receive Date: 20140314
  Receipt Date: 20140314
  Transmission Date: 20141002
  Serious: Yes (Hospitalization)
  Sender: FDA-Public Use
  Company Number: CA-BAXTER-2014BAX009219

PATIENT
  Age: 46 Year
  Sex: Male

DRUGS (3)
  1. EXTRANEAL [Suspect]
     Indication: TRANSPLANT FAILURE
     Route: 033
     Dates: start: 201309
  2. DIANEAL PD4 SOLUTION WITH 1.5% DEXTROSE AND 2.5 MEQ/L CALCIUM [Suspect]
     Indication: TRANSPLANT FAILURE
     Route: 033
     Dates: start: 201309
  3. DIANEAL PD4 SOLUTION WITH 2.5% DEXTROSE AND 2.5 MEQ/L CALCIUM [Suspect]
     Indication: TRANSPLANT FAILURE
     Route: 033
     Dates: start: 201309

REACTIONS (3)
  - Oesophageal disorder [Recovered/Resolved]
  - Hernia [Recovering/Resolving]
  - Lower limb fracture [Recovering/Resolving]
